FAERS Safety Report 22306439 (Version 2)
Quarter: 2023Q2

REPORT INFORMATION
  Report Type: Report from Study
  Country: CA (occurrence: CA)
  Receive Date: 20230511
  Receipt Date: 20230522
  Transmission Date: 20230722
  Serious: Yes (Other)
  Sender: FDA-Public Use
  Company Number: CA-BIOGEN-2022BI01152482

PATIENT
  Age: 31 Year
  Sex: Female

DRUGS (6)
  1. TYSABRI [Suspect]
     Active Substance: NATALIZUMAB
     Indication: Multiple sclerosis
     Route: 050
     Dates: start: 20201106
  2. TYSABRI [Suspect]
     Active Substance: NATALIZUMAB
     Route: 050
     Dates: start: 20221220
  3. TYSABRI [Suspect]
     Active Substance: NATALIZUMAB
     Dosage: Q6-8 WEEKS
     Route: 050
     Dates: start: 20201106
  4. TYSABRI [Suspect]
     Active Substance: NATALIZUMAB
     Dosage: 6-8 WEEKS
     Route: 050
     Dates: start: 20201106
  5. TYSABRI [Suspect]
     Active Substance: NATALIZUMAB
     Route: 050
     Dates: start: 20201106
  6. OXYTOCIN [Suspect]
     Active Substance: OXYTOCIN
     Indication: Product used for unknown indication
     Route: 050

REACTIONS (6)
  - Foetal heart rate decreased [Unknown]
  - Premature separation of placenta [Unknown]
  - Reproductive tract procedural complication [Unknown]
  - Gestational diabetes [Unknown]
  - Thrombosis [Unknown]
  - Maternal exposure during pregnancy [Recovered/Resolved]

NARRATIVE: CASE EVENT DATE: 20230428
